FAERS Safety Report 20328554 (Version 2)
Quarter: 2022Q1

REPORT INFORMATION
  Report Type: Spontaneous
  Country: US (occurrence: US)
  Receive Date: 20220112
  Receipt Date: 20220217
  Transmission Date: 20220424
  Serious: Yes (Hospitalization)
  Sender: FDA-Public Use
  Company Number: US-PFIZER INC-202200009152

PATIENT
  Age: 29 Year
  Sex: Female

DRUGS (7)
  1. LIDOCAINE HYDROCHLORIDE [Suspect]
     Active Substance: LIDOCAINE HYDROCHLORIDE
     Indication: Radicular pain
     Dosage: HD 16
     Route: 042
  2. LIDOCAINE HYDROCHLORIDE [Suspect]
     Active Substance: LIDOCAINE HYDROCHLORIDE
     Dosage: /HR (HD 16)
     Route: 042
  3. LIDOCAINE HYDROCHLORIDE [Suspect]
     Active Substance: LIDOCAINE HYDROCHLORIDE
     Dosage: /HOUR (HD 17)
     Route: 042
  4. LIDOCAINE HYDROCHLORIDE [Suspect]
     Active Substance: LIDOCAINE HYDROCHLORIDE
     Dosage: /HR (DECREASED ON HD17)
     Route: 042
  5. DEXAMETHASONE [Concomitant]
     Active Substance: DEXAMETHASONE
     Indication: Pain
     Dosage: QAM STARTED ON HD 20
     Route: 042
  6. DEXAMETHASONE [Concomitant]
     Active Substance: DEXAMETHASONE
     Indication: Bone pain
     Dosage: Q8 HOURS HD 25
     Route: 042
  7. KETAMINE [Concomitant]
     Active Substance: KETAMINE
     Indication: Pain
     Dosage: HR (INFUSION)

REACTIONS (1)
  - Hoigne^s syndrome [Recovering/Resolving]
